FAERS Safety Report 9175380 (Version 1)
Quarter: 2013Q1

REPORT INFORMATION
  Report Type: Spontaneous
  Country: FR (occurrence: FR)
  Receive Date: 20130320
  Receipt Date: 20130320
  Transmission Date: 20140127
  Serious: Yes (Death)
  Sender: FDA-Public Use
  Company Number: FR-ROCHE-1203690

PATIENT
  Age: 80 Year
  Sex: Female

DRUGS (5)
  1. MABTHERA [Suspect]
     Indication: SJOGREN^S SYNDROME
     Route: 042
     Dates: start: 20121214, end: 20121214
  2. MABTHERA [Suspect]
     Route: 065
     Dates: start: 20120406
  3. MABTHERA [Suspect]
     Route: 065
     Dates: start: 20120420
  4. ROCEPHINE [Concomitant]
  5. TAVANIC [Concomitant]

REACTIONS (1)
  - Respiratory distress [Fatal]
